FAERS Safety Report 5355469-5 (Version None)
Quarter: 2007Q2

REPORT INFORMATION
  Report Type: 
  Country: None (occurrence: None)
  Receive Date: 20070530
  Receipt Date: 20061128
  Transmission Date: 20071010
  Serious: Yes (Other)
  Sender: FDA-Public Use
  Company Number: US200609002134

PATIENT
  Age: 40 Year
  Sex: Male
  Weight: 107 kg

DRUGS (1)
  1. ZYPREXA [Suspect]
     Dosage: 20 MG, ORAL
     Route: 048
     Dates: start: 20020101

REACTIONS (5)
  - BLOOD CHOLESTEROL INCREASED [None]
  - DIABETES MELLITUS [None]
  - HYPERTENSION [None]
  - METABOLIC ACIDOSIS [None]
  - METABOLIC DISORDER [None]
